FAERS Safety Report 7564367-8 (Version None)
Quarter: 2011Q2

REPORT INFORMATION
  Report Type: 
  Country: None (occurrence: None)
  Receive Date: 20110622
  Receipt Date: 20110609
  Transmission Date: 20111010
  Serious: Yes (Other)
  Sender: FDA-Public Use
  Company Number: PHHY2011JP51317

PATIENT

DRUGS (3)
  1. BISOLVON [Interacting]
     Route: 048
  2. MUCOSOLVAN [Concomitant]
     Route: 048
  3. TEGRETOL [Suspect]
     Route: 048

REACTIONS (3)
  - DRUG INTERACTION [None]
  - EPILEPSY [None]
  - DRUG LEVEL DECREASED [None]
